FAERS Safety Report 7864196-1 (Version None)
Quarter: 2011Q4

REPORT INFORMATION
  Report Type: 
  Country: None (occurrence: None)
  Receive Date: 20111028
  Receipt Date: 20111024
  Transmission Date: 20120403
  Serious: Yes (Hospitalization)
  Sender: FDA-Public Use
  Company Number: US-PFIZER INC-2011258417

PATIENT
  Sex: Female
  Weight: 68 kg

DRUGS (4)
  1. PRISTIQ [Suspect]
     Indication: DEPRESSION
     Dosage: 50 MG, 1X/DAY
     Route: 048
     Dates: start: 20090101
  2. NORVASC [Concomitant]
     Indication: HYPERTENSION
     Dosage: 10 MG
  3. CLIMARA [Concomitant]
     Indication: HYSTERECTOMY
     Dosage: UNK
  4. PRISTIQ [Suspect]
     Dosage: 100 MG, 1X/DAY
     Route: 048
     Dates: end: 20110930

REACTIONS (9)
  - WITHDRAWAL SYNDROME [None]
  - MALAISE [None]
  - INFECTION [None]
  - INSOMNIA [None]
  - WHITE BLOOD CELL COUNT INCREASED [None]
  - LOCAL SWELLING [None]
  - ABDOMINAL DISCOMFORT [None]
  - CELLULITIS [None]
  - NAUSEA [None]
